FAERS Safety Report 13471691 (Version 1)
Quarter: 2017Q2

REPORT INFORMATION
  Report Type: Spontaneous
  Country: US (occurrence: US)
  Receive Date: 20170424
  Receipt Date: 20170424
  Transmission Date: 20170830
  Serious: No
  Sender: FDA-Public Use
  Company Number: US-PFIZER INC-2017173249

PATIENT
  Sex: Female

DRUGS (2)
  1. CELECOXIB. [Suspect]
     Active Substance: CELECOXIB
     Dosage: 200MG PER DAY
  2. CELEBREX [Suspect]
     Active Substance: CELECOXIB

REACTIONS (3)
  - Musculoskeletal discomfort [Unknown]
  - Drug dispensing error [Unknown]
  - Musculoskeletal pain [Unknown]
